FAERS Safety Report 23125023 (Version 1)
Quarter: 2023Q4

REPORT INFORMATION
  Report Type: Spontaneous
  Country: US (occurrence: US)
  Receive Date: 20231030
  Receipt Date: 20231030
  Transmission Date: 20240109
  Serious: No
  Sender: FDA-Public Use
  Company Number: US-EPIHEALTH-2023-US-034016

PATIENT
  Age: 48 Year
  Sex: Female
  Weight: 63.5 kg

DRUGS (7)
  1. RHOFADE [Suspect]
     Active Substance: OXYMETAZOLINE HYDROCHLORIDE
     Indication: Capillary fragility
     Dosage: APPLIED IT TO HER NOSE, NECK AND CHEST ONCE PER DAY IN THE MORNING.
     Route: 061
     Dates: start: 20231013, end: 20231015
  2. SYNTHROID [Concomitant]
     Active Substance: LEVOTHYROXINE SODIUM
  3. UBRELVY [Concomitant]
     Active Substance: UBROGEPANT
  4. AJOVY [Concomitant]
     Active Substance: FREMANEZUMAB-VFRM
  5. REPATHA [Concomitant]
     Active Substance: EVOLOCUMAB
  6. FIBER [Concomitant]
  7. MAGNESIUM [Concomitant]
     Active Substance: MAGNESIUM

REACTIONS (4)
  - Visual impairment [Recovered/Resolved]
  - Paraesthesia [Recovered/Resolved]
  - Vision blurred [Recovered/Resolved]
  - Product use in unapproved indication [Recovered/Resolved]

NARRATIVE: CASE EVENT DATE: 20231013
